FAERS Safety Report 26159031 (Version 1)
Quarter: 2025Q4

REPORT INFORMATION
  Report Type: Spontaneous
  Country: US (occurrence: None)
  Receive Date: 20251215
  Receipt Date: 20251215
  Transmission Date: 20260117
  Serious: No
  Sender: ENDO
  Company Number: US-ENDO USA, INC.-2025-002088

PATIENT
  Sex: Male

DRUGS (2)
  1. TESTIM [Suspect]
     Active Substance: TESTOSTERONE
     Indication: Androgen deficiency
     Dosage: UNK UNKNOWN, UNKNOWN
     Route: 065
  2. TESTOSTERONE [Suspect]
     Active Substance: TESTOSTERONE
     Indication: Androgen deficiency
     Dosage: UNK UNKNOWN, UNKNOWN, (STOPPED IN 2011 OR 2012)
     Route: 065

REACTIONS (1)
  - Drug ineffective [Unknown]
